FAERS Safety Report 10048378 (Version 3)
Quarter: 2015Q2

REPORT INFORMATION
  Report Type: Spontaneous
  Country: DE (occurrence: DE)
  Receive Date: 20140331
  Receipt Date: 20150424
  Transmission Date: 20150821
  Serious: Yes (Other)
  Sender: FDA-Public Use
  Company Number: DE-GLAXOSMITHKLINE-D0066624A

PATIENT
  Sex: Female

DRUGS (33)
  1. RELVAR ELLIPTA [Suspect]
     Active Substance: FLUTICASONE FUROATE\VILANTEROL TRIFENATATE
     Route: 065
  2. VALETTE [Concomitant]
     Active Substance: DIENOGEST\ETHINYL ESTRADIOL
     Route: 065
  3. L-THYROXIN [Concomitant]
     Active Substance: LEVOTHYROXINE SODIUM
     Route: 065
  4. MOTILIUM [Concomitant]
     Active Substance: DOMPERIDONE
     Route: 065
  5. VENTOLAIR [Concomitant]
     Active Substance: BECLOMETHASONE DIPROPIONATE
  6. ATROVENT [Concomitant]
     Active Substance: IPRATROPIUM BROMIDE
  7. SPIRIVA [Concomitant]
     Active Substance: TIOTROPIUM BROMIDE MONOHYDRATE
     Route: 065
  8. FEXOFENADINE [Concomitant]
     Active Substance: FEXOFENADINE\FEXOFENADINE HYDROCHLORIDE
     Route: 065
  9. BERODUAL [Concomitant]
     Active Substance: FENOTEROL HYDROBROMIDE\IPRATROPIUM BROMIDE
     Route: 065
  10. CLARITHROMYCIN. [Concomitant]
     Active Substance: CLARITHROMYCIN
     Route: 065
  11. XOLAIR [Concomitant]
     Active Substance: OMALIZUMAB
  12. LIVOCAB [Concomitant]
  13. VIANI FORTE [Suspect]
     Active Substance: FLUTICASONE PROPIONATE\SALMETEROL XINAFOATE
     Indication: ASTHMA
     Route: 065
     Dates: start: 20081013
  14. SINGULAIR [Concomitant]
     Active Substance: MONTELUKAST SODIUM
     Route: 065
  15. BEROTEC [Concomitant]
     Active Substance: FENOTEROL HYDROBROMIDE
     Route: 065
  16. MCP [Concomitant]
     Active Substance: METOCLOPRAMIDE HYDROCHLORIDE
     Route: 065
     Dates: start: 20081015
  17. RUPAFIN [Concomitant]
     Active Substance: RUPATADINE FUMARATE
  18. PREDNISOLON [Suspect]
     Active Substance: PREDNISOLONE
     Route: 065
  19. SULTANOL [Concomitant]
     Active Substance: ALBUTEROL SULFATE
     Route: 055
  20. VOMEX [Concomitant]
     Active Substance: DIMENHYDRINATE
     Route: 065
     Dates: start: 20081015
  21. FLUTIDE FORTE [Suspect]
     Active Substance: FLUTICASONE PROPIONATE
     Route: 055
  22. DECORTIN [Suspect]
     Active Substance: PREDNISONE
     Route: 065
  23. SOLU-DECORTIN [Suspect]
     Active Substance: PREDNISOLONE SODIUM SUCCINATE
     Route: 065
  24. BRONCHOSPASMIN [Concomitant]
     Route: 065
     Dates: start: 20081015
  25. TAVEGIL [Concomitant]
     Active Substance: CLEMASTINE FUMARATE
     Route: 065
  26. KETOF [Concomitant]
     Route: 065
  27. FENISTIL [Concomitant]
     Active Substance: DIMETHINDENE
     Route: 065
  28. AMPHO-MORONAL [Concomitant]
     Active Substance: AMPHOTERICIN B
     Indication: ORAL CANDIDIASIS
     Route: 065
     Dates: start: 20090715
  29. ALVESCO [Concomitant]
     Active Substance: CICLESONIDE
  30. AVAMYS [Concomitant]
     Active Substance: FLUTICASONE FUROATE
  31. HYDROCORTISONE. [Concomitant]
     Active Substance: HYDROCORTISONE
     Dosage: 20 MG, UNK
  32. PANTOZOL [Concomitant]
     Active Substance: PANTOPRAZOLE SODIUM
     Route: 065
  33. CELESTAMINE [Concomitant]
     Active Substance: BETAMETHASONE\DEXCHLORPHENIRAMINE MALEATE
     Route: 065
     Dates: start: 20081015

REACTIONS (5)
  - Diabetes mellitus [Unknown]
  - Dysphonia [Unknown]
  - Hypertension [Unknown]
  - Adrenal insufficiency [Unknown]
  - Asthma [Unknown]
